FAERS Safety Report 8376259-5 (Version None)
Quarter: 2012Q2

REPORT INFORMATION
  Report Type: 
  Country: None (occurrence: None)
  Receive Date: 20120517
  Receipt Date: 20120504
  Transmission Date: 20120825
  Serious: Yes (Disabling)
  Sender: FDA-Public Use
  Company Number: AUR-APL-2012-00462

PATIENT
  Age: 68 Year
  Sex: Male
  Weight: 81.64 kg

DRUGS (6)
  1. CITALOPRAM HYDROBROMIDE [Concomitant]
  2. TIMOLOL MALEATE [Concomitant]
  3. MIRTAZAPINE [Suspect]
  4. ASACOL [Concomitant]
  5. SIMVASTATIN [Concomitant]
  6. LOCERYL (AMOROLFINE) [Concomitant]

REACTIONS (7)
  - NOCTURIA [None]
  - MICTURITION URGENCY [None]
  - HEADACHE [None]
  - MUSCLE TWITCHING [None]
  - URINARY TRACT DISORDER [None]
  - DIZZINESS [None]
  - DYSURIA [None]
